FAERS Safety Report 9933818 (Version 2)
Quarter: 2014Q1

REPORT INFORMATION
  Report Type: Report from Study
  Country: US (occurrence: US)
  Receive Date: 20140228
  Receipt Date: 20140228
  Transmission Date: 20141002
  Serious: No
  Sender: FDA-Public Use
  Company Number: US-MYLANLABS-2013S1015738

PATIENT
  Age: 36 Year
  Sex: Male

DRUGS (2)
  1. AMNESTEEM CAPSULES [Suspect]
     Indication: ACNE
     Route: 048
     Dates: start: 201304, end: 2013
  2. GEMFIBROZIL [Suspect]
     Indication: BLOOD CHOLESTEROL
     Dates: start: 20130521, end: 2013

REACTIONS (1)
  - Diarrhoea [Recovered/Resolved]
